FAERS Safety Report 5927535-4 (Version None)
Quarter: 2008Q4

REPORT INFORMATION
  Report Type: 
  Country: None (occurrence: None)
  Receive Date: 20081021
  Receipt Date: 20081021
  Transmission Date: 20090506
  Serious: Yes (Other)
  Sender: FDA-Public Use
  Company Number: None

PATIENT
  Sex: Female
  Weight: 49.8957 kg

DRUGS (1)
  1. RECLAST [Suspect]
     Indication: BONE DENSITY DECREASED
     Dosage: ONCE A YEAR

REACTIONS (11)
  - ABASIA [None]
  - AGITATION [None]
  - ANOREXIA [None]
  - ASTHENIA [None]
  - BONE PAIN [None]
  - CHILLS [None]
  - CONSTIPATION [None]
  - DEPRESSION [None]
  - DYSPEPSIA [None]
  - HEADACHE [None]
  - PYREXIA [None]
